FAERS Safety Report 19564157 (Version 2)
Quarter: 2021Q3

REPORT INFORMATION
  Report Type: Report from Study
  Country: BR (occurrence: BR)
  Receive Date: 20210714
  Receipt Date: 20210913
  Transmission Date: 20211014
  Serious: Yes (Other)
  Sender: FDA-Public Use
  Company Number: PHHY2019BR068880

PATIENT
  Age: 56 Year
  Sex: Female
  Weight: 73 kg

DRUGS (20)
  1. COSENTYX [Suspect]
     Active Substance: SECUKINUMAB
     Dosage: UNK
     Route: 065
     Dates: start: 20191125
  2. DIURIX [Concomitant]
     Active Substance: FUROSEMIDE
     Indication: HYPERTENSION
     Dosage: 25 OT, QD
     Route: 048
  3. PURAN [Concomitant]
     Active Substance: LEVOTHYROXINE SODIUM
     Indication: HYPOTHYROIDISM
     Dosage: 150 OT, QD (IN FASTING)
     Route: 048
  4. PREDNISOLONE. [Concomitant]
     Active Substance: PREDNISOLONE
     Indication: ARTHRITIS
     Dosage: 5 MG, QD
     Route: 048
  5. BUSCOPAN [Concomitant]
     Active Substance: BUTYLSCOPOLAMINE BROMIDE
     Indication: PRODUCT USED FOR UNKNOWN INDICATION
     Dosage: UNK
     Route: 065
  6. OMEPRAZOLE. [Concomitant]
     Active Substance: OMEPRAZOLE
     Indication: GASTRIC DISORDER
     Dosage: 20 MG, BID
     Route: 048
  7. GLUCOSAMINE CHONDROITIN [Concomitant]
     Active Substance: CHONDROITIN SULFATE (BOVINE)\GLUCOSAMINE HYDROCHLORIDE
     Indication: ARTHROPATHY
     Dosage: UNK
     Route: 048
  8. COSENTYX [Suspect]
     Active Substance: SECUKINUMAB
     Indication: PSORIATIC ARTHROPATHY
     Dosage: UNK UNK, QW
     Route: 058
     Dates: start: 20190129
  9. TANDENE [Concomitant]
     Active Substance: ACETAMINOPHEN\CAFFEINE\CARISOPRODOL\DICLOFENAC SODIUM
     Indication: INFLAMMATION
  10. PREDNISOLON [Concomitant]
     Active Substance: PREDNISOLONE
     Indication: INFLAMMATORY PAIN
     Dosage: UNK
     Route: 048
  11. COSENTYX [Suspect]
     Active Substance: SECUKINUMAB
     Dosage: 300 MG, QMO
     Route: 065
  12. ARADOIS [Concomitant]
     Active Substance: LOSARTAN POTASSIUM
     Indication: HYPERTENSION
     Dosage: 50 OT, BID
     Route: 048
  13. PREDNISON [Concomitant]
     Active Substance: PREDNISONE
     Indication: PRODUCT USED FOR UNKNOWN INDICATION
     Route: 065
  14. COSENTYX [Suspect]
     Active Substance: SECUKINUMAB
     Indication: RHEUMATOID ARTHRITIS
     Dosage: 150 MG, UNKNOWN (DURING ATTACK DOSES PHASE)
     Route: 065
     Dates: start: 20190216, end: 20190323
  15. TANDENE [Concomitant]
     Active Substance: ACETAMINOPHEN\CAFFEINE\CARISOPRODOL\DICLOFENAC SODIUM
     Indication: ARTHRALGIA
     Dosage: ONCE OR TWICE A DAY ACCORDING TO ACHES EVERY 12 HOURS
     Route: 048
  16. ALLOPURINOL. [Concomitant]
     Active Substance: ALLOPURINOL
     Indication: PRODUCT USED FOR UNKNOWN INDICATION
     Dosage: 300 OT, QD
     Route: 048
  17. ASA [Concomitant]
     Active Substance: ASPIRIN
     Indication: PRODUCT USED FOR UNKNOWN INDICATION
     Dosage: 100 OT, QD
     Route: 048
  18. LEFLUNOMIDE. [Concomitant]
     Active Substance: LEFLUNOMIDE
     Indication: ARTHRITIS
     Dosage: 20 OT, QD
     Route: 048
  19. COSENTYX [Suspect]
     Active Substance: SECUKINUMAB
     Dosage: 300 MG, QMO
     Route: 065
     Dates: start: 20190423
  20. ATENOLOL. [Concomitant]
     Active Substance: ATENOLOL
     Indication: HYPERTENSION
     Dosage: 25 OT, BID
     Route: 048

REACTIONS (51)
  - Fatigue [Recovered/Resolved]
  - Dehydration [Unknown]
  - Erythroblast count increased [Unknown]
  - Nasal congestion [Recovered/Resolved]
  - Product use in unapproved indication [Unknown]
  - C-reactive protein abnormal [Unknown]
  - Haemoglobin decreased [Unknown]
  - Mean cell haemoglobin concentration abnormal [Unknown]
  - Abdominal pain upper [Recovered/Resolved]
  - Oesophageal infection [Unknown]
  - Hypochromasia [Unknown]
  - Blood urea increased [Unknown]
  - Foot deformity [Unknown]
  - Neutrophil count increased [Unknown]
  - Nasopharyngitis [Recovered/Resolved]
  - Decreased immune responsiveness [Recovered/Resolved]
  - Mean cell haemoglobin decreased [Unknown]
  - Monocyte count increased [Unknown]
  - Peripheral swelling [Unknown]
  - Gait disturbance [Unknown]
  - Pollakiuria [Unknown]
  - Influenza [Recovered/Resolved]
  - Red cell distribution width increased [Unknown]
  - Lymphocyte count increased [Unknown]
  - Bone deformity [Unknown]
  - White blood cell count increased [Unknown]
  - Eosinophil count decreased [Unknown]
  - Feeling abnormal [Unknown]
  - Pain [Unknown]
  - Nail disorder [Unknown]
  - Ligament rupture [Recovering/Resolving]
  - Blood alkaline phosphatase increased [Unknown]
  - Finger deformity [Unknown]
  - Stress [Unknown]
  - Ligament sprain [Recovering/Resolving]
  - Psoriasis [Recovering/Resolving]
  - Osteonecrosis [Unknown]
  - Bone loss [Unknown]
  - Decreased immune responsiveness [Unknown]
  - Red blood cell sedimentation rate increased [Unknown]
  - Mean cell volume decreased [Unknown]
  - Gastritis [Unknown]
  - Pyrexia [Recovered/Resolved]
  - Contusion [Recovering/Resolving]
  - Resorption bone increased [Unknown]
  - Anisocytosis [Unknown]
  - Poikilocytosis [Unknown]
  - Platelet count increased [Unknown]
  - Fall [Unknown]
  - Vaccination complication [Unknown]
  - Illness [Unknown]

NARRATIVE: CASE EVENT DATE: 20190301
